FAERS Safety Report 17251573 (Version 1)
Quarter: 2019Q4

REPORT INFORMATION
  Report Type: Spontaneous
  Country: US (occurrence: US)
  Receive Date: 20191216
  Receipt Date: 20191216
  Transmission Date: 20200122
  Serious: No
  Sender: FDA-Public Use
  Company Number: None

PATIENT
  Sex: Female
  Weight: 64.86 kg

DRUGS (1)
  1. BUPROPION 150MG [Suspect]
     Active Substance: BUPROPION HYDROCHLORIDE

REACTIONS (6)
  - Dizziness [None]
  - Headache [None]
  - Fatigue [None]
  - Product substitution issue [None]
  - Disorientation [None]
  - Disturbance in attention [None]
